FAERS Safety Report 5084219-5 (Version None)
Quarter: 2006Q3

REPORT INFORMATION
  Report Type: 
  Country: None (occurrence: None)
  Receive Date: 20060821
  Receipt Date: 20060109
  Transmission Date: 20061208
  Serious: No
  Sender: FDA-Public Use
  Company Number: US-BRISTOL-MYERS SQUIBB COMPANY-13240908

PATIENT
  Age: 57 Year
  Sex: Female
  Weight: 70 kg

DRUGS (5)
  1. TEQUIN [Suspect]
     Indication: SINUSITIS
     Dates: start: 20060105
  2. TEQUIN [Suspect]
     Indication: PHARYNGOLARYNGEAL PAIN
     Dates: start: 20060105
  3. PROPANOLOL HYDROCHLORIDE [Concomitant]
  4. ZETIA [Concomitant]
  5. DONNATAL [Concomitant]

REACTIONS (2)
  - BACK PAIN [None]
  - MYALGIA [None]
